FAERS Safety Report 18415744 (Version 3)
Quarter: 2021Q1

REPORT INFORMATION
  Report Type: Spontaneous
  Country: US (occurrence: US)
  Receive Date: 20201022
  Receipt Date: 20210127
  Transmission Date: 20210419
  Serious: No
  Sender: FDA-Public Use
  Company Number: US-PFIZER INC-2020408977

PATIENT
  Age: 64 Year
  Sex: Female

DRUGS (1)
  1. XELJANZ XR [Suspect]
     Active Substance: TOFACITINIB CITRATE
     Indication: RHEUMATOID ARTHRITIS
     Dosage: 11 MG, DAILY
     Route: 048
     Dates: start: 20200420

REACTIONS (8)
  - Suspected COVID-19 [Unknown]
  - Nasopharyngitis [Unknown]
  - Cough [Unknown]
  - Nasal congestion [Unknown]
  - Blood cholesterol increased [Unknown]
  - Oropharyngeal pain [Unknown]
  - Wheezing [Unknown]
  - Upper respiratory tract infection [Recovered/Resolved]

NARRATIVE: CASE EVENT DATE: 202010
